FAERS Safety Report 6636005-X (Version None)
Quarter: 2010Q1

REPORT INFORMATION
  Report Type: 
  Country: None (occurrence: None)
  Receive Date: 20100311
  Receipt Date: 20100301
  Transmission Date: 20100710
  Serious: Yes (Hospitalization, Other)
  Sender: FDA-Public Use
  Company Number: 2009-190754-NL

PATIENT
  Age: 27 Year
  Sex: Female
  Weight: 63 kg

DRUGS (2)
  1. NUVARING [Suspect]
     Indication: CONTRACEPTION
     Dates: start: 20060101, end: 20080301
  2. PEPCID [Concomitant]

REACTIONS (20)
  - ACUTE SINUSITIS [None]
  - ARTHRALGIA [None]
  - BACK PAIN [None]
  - BREAST HYPERPLASIA [None]
  - CONDITION AGGRAVATED [None]
  - COSTOCHONDRITIS [None]
  - FACIAL PAIN [None]
  - FIBROCYSTIC BREAST DISEASE [None]
  - FOLLICULITIS [None]
  - HEADACHE [None]
  - HILAR LYMPHADENOPATHY [None]
  - MYALGIA [None]
  - PHARYNGITIS [None]
  - PLEURAL EFFUSION [None]
  - PNEUMONIA [None]
  - PULMONARY EMBOLISM [None]
  - PULMONARY SARCOIDOSIS [None]
  - RHEUMATOID ARTHRITIS [None]
  - STAPHYLOCOCCAL SKIN INFECTION [None]
  - SYSTEMIC LUPUS ERYTHEMATOSUS [None]
